FAERS Safety Report 17870741 (Version 2)
Quarter: 2020Q2

REPORT INFORMATION
  Report Type: Spontaneous
  Country: US (occurrence: US)
  Receive Date: 20200608
  Receipt Date: 20200629
  Transmission Date: 20200714
  Serious: No
  Sender: FDA-Public Use
  Company Number: US-VERTEX PHARMACEUTICALS-2020-012139

PATIENT
  Sex: Female
  Weight: 91 kg

DRUGS (13)
  1. METFORMIN HCL PFIZER [Concomitant]
     Active Substance: METFORMIN HYDROCHLORIDE
  2. PANTOPRAZOLE SODIUM. [Concomitant]
     Active Substance: PANTOPRAZOLE SODIUM
  3. FLONASE ALLERGY RELIEF [Concomitant]
     Active Substance: FLUTICASONE PROPIONATE
  4. SINGULAIR [Concomitant]
     Active Substance: MONTELUKAST SODIUM
  5. MUCINEX [Concomitant]
     Active Substance: GUAIFENESIN
     Dosage: UNK, BID
  6. TRIKAFTA [Suspect]
     Active Substance: ELEXACAFTOR\IVACAFTOR\TEZACAFTOR
     Indication: CYSTIC FIBROSIS
     Dosage: 2 ORANGE TABLETS (100MG ELEXA/ 50MG TEZA/ 75MG IVA) AM, 1 BLUE TABLET (150MG IVA) PM
     Route: 048
  7. ASPIRIN [ACETYLSALICYLIC ACID] [Concomitant]
     Active Substance: ASPIRIN
  8. XANAX [Concomitant]
     Active Substance: ALPRAZOLAM
  9. PULMOZYME [Concomitant]
     Active Substance: DORNASE ALFA
     Dosage: 1MG/ML VIAL SOLUTION
  10. GLIPIZIDE;METFORMIN [Concomitant]
     Active Substance: GLIPIZIDE\METFORMIN HYDROCHLORIDE
  11. TORSEMIDE. [Concomitant]
     Active Substance: TORSEMIDE
  12. VITAMIN E [Concomitant]
     Active Substance: .ALPHA.-TOCOPHEROL
     Dosage: 1000 UNIT
  13. RENVELA [Concomitant]
     Active Substance: SEVELAMER CARBONATE

REACTIONS (3)
  - Thirst [Not Recovered/Not Resolved]
  - Constipation [Not Recovered/Not Resolved]
  - Malaise [Unknown]
